FAERS Safety Report 21875292 (Version 1)
Quarter: 2023Q1

REPORT INFORMATION
  Report Type: Report from Study
  Country: US (occurrence: US)
  Receive Date: 20230117
  Receipt Date: 20230117
  Transmission Date: 20230417
  Serious: No
  Sender: FDA-Public Use
  Company Number: US-ABBVIE-4238959

PATIENT
  Sex: Female

DRUGS (1)
  1. SKYRIZI [Suspect]
     Active Substance: RISANKIZUMAB-RZAA
     Indication: Product used for unknown indication
     Route: 058

REACTIONS (6)
  - Nausea [Unknown]
  - Raynaud^s phenomenon [Not Recovered/Not Resolved]
  - Blood cholesterol increased [Unknown]
  - Pruritus [Unknown]
  - Night sweats [Unknown]
  - Blood triglycerides increased [Unknown]
